FAERS Safety Report 5846975-5 (Version None)
Quarter: 2008Q3

REPORT INFORMATION
  Report Type: 
  Country: None (occurrence: None)
  Receive Date: 20080815
  Receipt Date: 20080804
  Transmission Date: 20090109
  Serious: Yes (Hospitalization, Other)
  Sender: FDA-Public Use
  Company Number: DE-PFIZER INC-2008056808

PATIENT
  Sex: Female
  Weight: 54 kg

DRUGS (12)
  1. LYRICA [Suspect]
     Indication: ERYSIPELAS
     Route: 048
  2. LYRICA [Suspect]
     Indication: NEURALGIA
  3. TILIDINE [Concomitant]
     Dosage: DAILY DOSE:40DROP
     Route: 031
  4. PROPRANOLOL [Concomitant]
     Route: 048
  5. LISIHEXAL [Concomitant]
     Route: 048
  6. ASPIRIN [Concomitant]
     Route: 048
  7. FOLIC ACID [Concomitant]
  8. AVELOX [Concomitant]
  9. CALCIMAGON [Concomitant]
  10. OPIPRAMOL [Concomitant]
  11. MOVICOL [Concomitant]
  12. METAMIZOLE [Concomitant]

REACTIONS (10)
  - ANISOCYTOSIS [None]
  - CONFUSIONAL STATE [None]
  - DIZZINESS [None]
  - ERYSIPELAS [None]
  - FATIGUE [None]
  - IRON DEFICIENCY [None]
  - PARAPROTEINAEMIA [None]
  - PNEUMONIA [None]
  - SOMNOLENCE [None]
  - URINARY TRACT INFECTION [None]
